FAERS Safety Report 6918743-4 (Version None)
Quarter: 2010Q3

REPORT INFORMATION
  Report Type: 
  Country: None (occurrence: None)
  Receive Date: 20100811
  Receipt Date: 20100624
  Transmission Date: 20110219
  Serious: Yes (Hospitalization)
  Sender: FDA-Public Use
  Company Number: BR-ASTRAZENECA-2010SE29539

PATIENT
  Age: 17515 Day
  Sex: Female

DRUGS (11)
  1. PRILOSEC [Suspect]
     Indication: PROPHYLAXIS AGAINST GASTROINTESTINAL ULCER
     Route: 048
     Dates: start: 20090419, end: 20090808
  2. PRILOSEC [Suspect]
     Route: 048
     Dates: start: 20100624
  3. DIPIRONA [Suspect]
     Route: 065
  4. PLASIL [Suspect]
     Route: 065
  5. METFORMIN HCL [Suspect]
     Indication: DIABETES MELLITUS
     Route: 048
  6. INSULIN [Suspect]
     Indication: DIABETES MELLITUS
     Route: 003
     Dates: start: 20090908
  7. SOMALGIN [Suspect]
     Indication: ANALGESIC THERAPY
     Route: 048
     Dates: start: 20100623, end: 20100624
  8. FLUOXETINE [Suspect]
     Indication: DEPRESSION
     Route: 048
  9. CICLOBENZAPRINE [Suspect]
     Indication: FIBROMYALGIA
     Route: 048
  10. COMBIRON [Suspect]
     Route: 065
  11. ROSUVASTATIN CODE NOT BROKEN [Suspect]
     Indication: CORONARY ARTERY DISEASE
     Dosage: DAILY
     Route: 048
     Dates: start: 20090521

REACTIONS (1)
  - CHEST PAIN [None]
